FAERS Safety Report 16497173 (Version 1)
Quarter: 2019Q2

REPORT INFORMATION
  Report Type: Spontaneous
  Country: US (occurrence: US)
  Receive Date: 20190628
  Receipt Date: 20190628
  Transmission Date: 20190711
  Serious: No
  Sender: FDA-Public Use
  Company Number: US-SUNOVION-2019SUN002618

PATIENT
  Sex: Male

DRUGS (4)
  1. LONHALA MAGNAIR [Suspect]
     Active Substance: GLYCOPYRROLATE
     Dosage: 25 ?G/ 1 ML QD
     Route: 055
  2. UTIBRON NEOHALER [Suspect]
     Active Substance: GLYCOPYRROLATE\INDACATEROL MALEATE
     Dosage: UNK
     Route: 055
  3. XOPENEX [Concomitant]
     Active Substance: LEVALBUTEROL HYDROCHLORIDE
     Dosage: UNK
  4. SEEBRI [Suspect]
     Active Substance: GLYCOPYRROLATE
     Route: 055

REACTIONS (4)
  - Abdominal discomfort [Unknown]
  - Dry mouth [Unknown]
  - Lactose intolerance [Unknown]
  - Product administration error [Unknown]
